FAERS Safety Report 8167218-6 (Version None)
Quarter: 2012Q1

REPORT INFORMATION
  Report Type: 
  Country: None (occurrence: None)
  Receive Date: 20120227
  Receipt Date: 20120215
  Transmission Date: 20120608
  Serious: Yes (Other)
  Sender: FDA-Public Use
  Company Number: US-JNJFOC-20120209932

PATIENT
  Age: 83 Year
  Sex: Male
  Weight: 69.39 kg

DRUGS (11)
  1. ASPIRIN [Concomitant]
     Indication: CARDIAC DISORDER
  2. GLYBURIDE [Concomitant]
     Indication: DIABETES MELLITUS
  3. LYRICA [Suspect]
     Indication: NEURALGIA
     Dosage: 2 CAPSULES AT BEDTIME
     Route: 048
     Dates: start: 20120210, end: 20120212
  4. FENTANYL [Concomitant]
     Indication: NEUROPATHY PERIPHERAL
     Route: 065
  5. IBUPROFEN [Suspect]
     Indication: PRODUCT USED FOR UNKNOWN INDICATION
     Route: 065
  6. ALL OTHER THERAPEUTIC PRODUCTS [Concomitant]
     Indication: PAIN IN EXTREMITY
     Route: 065
  7. MELOXICAM [Suspect]
     Indication: PRODUCT USED FOR UNKNOWN INDICATION
     Route: 065
  8. CARVEDILOL [Concomitant]
     Indication: HYPERTENSION
  9. SIMVASTATIN [Concomitant]
     Indication: BLOOD CHOLESTEROL INCREASED
  10. XALATAN [Concomitant]
     Indication: PRODUCT USED FOR UNKNOWN INDICATION
  11. COQ10 [Concomitant]
     Indication: PRODUCT USED FOR UNKNOWN INDICATION

REACTIONS (5)
  - GASTRITIS [None]
  - DIPLOPIA [None]
  - INTRAOCULAR PRESSURE INCREASED [None]
  - DIZZINESS [None]
  - VISUAL ACUITY REDUCED [None]
